FAERS Safety Report 15869315 (Version 3)
Quarter: 2019Q1

REPORT INFORMATION
  Report Type: Report from Study
  Country: US (occurrence: US)
  Receive Date: 20190125
  Receipt Date: 20190304
  Transmission Date: 20190417
  Serious: No
  Sender: FDA-Public Use
  Company Number: US-ACTELION-A-NJ2018-180177

PATIENT
  Age: 76 Year
  Sex: Female

DRUGS (20)
  1. FLAXSEED [Concomitant]
     Active Substance: FLAX SEED
  2. LIPITOR [Concomitant]
     Active Substance: ATORVASTATIN CALCIUM
  3. MONTELUKAST [Concomitant]
     Active Substance: MONTELUKAST SODIUM
  4. OPSUMIT [Suspect]
     Active Substance: MACITENTAN
     Indication: PULMONARY ARTERIAL HYPERTENSION
     Dosage: 10 MG, QD
     Route: 048
     Dates: start: 20180508
  5. AMBIEN [Concomitant]
     Active Substance: ZOLPIDEM TARTRATE
  6. CELEXA [Concomitant]
     Active Substance: CITALOPRAM HYDROBROMIDE
  7. POTASSIUM [Concomitant]
     Active Substance: POTASSIUM
  8. PREDNISONE. [Concomitant]
     Active Substance: PREDNISONE
  9. REVATIO [Concomitant]
     Active Substance: SILDENAFIL CITRATE
  10. ZOLPIDEM [Concomitant]
     Active Substance: ZOLPIDEM\ZOLPIDEM TARTRATE
  11. ASPIRIN. [Concomitant]
     Active Substance: ASPIRIN
  12. OMEGA 3 [Concomitant]
     Active Substance: OMEGA-3 FATTY ACIDS
  13. MULTIVITAMIN [Concomitant]
     Active Substance: VITAMINS
  14. ORENITRAM [Concomitant]
     Active Substance: TREPROSTINIL
  15. PROTONIX [Concomitant]
     Active Substance: PANTOPRAZOLE SODIUM
  16. SPIRIVA [Concomitant]
     Active Substance: TIOTROPIUM BROMIDE MONOHYDRATE
  17. VENTOLIN [Concomitant]
     Active Substance: ALBUTEROL SULFATE
  18. CALCIUM [Concomitant]
     Active Substance: CALCIUM
  19. LASIX [Concomitant]
     Active Substance: FUROSEMIDE
  20. VITAMIN D [Concomitant]
     Active Substance: CHOLECALCIFEROL

REACTIONS (6)
  - Inflammation [Unknown]
  - Disease progression [Not Recovered/Not Resolved]
  - Dyspepsia [Unknown]
  - Joint stiffness [Unknown]
  - Blood bilirubin increased [Unknown]
  - Pulmonary arterial hypertension [Not Recovered/Not Resolved]

NARRATIVE: CASE EVENT DATE: 20181130
